FAERS Safety Report 16856064 (Version 4)
Quarter: 2019Q4

REPORT INFORMATION
  Report Type: Spontaneous
  Country: US (occurrence: US)
  Receive Date: 20190926
  Receipt Date: 20191211
  Transmission Date: 20200122
  Serious: No
  Sender: FDA-Public Use
  Company Number: US-PFIZER INC-2019413406

PATIENT
  Age: 56 Year
  Sex: Male
  Weight: 77.98 kg

DRUGS (1)
  1. VIAGRA [Suspect]
     Active Substance: SILDENAFIL CITRATE
     Indication: SEXUAL DYSFUNCTION
     Dosage: 100 MG, AS NEEDED (FOR DAILY USE)

REACTIONS (5)
  - Anger [Unknown]
  - Malaise [Unknown]
  - Speech disorder [Unknown]
  - Bronchitis [Not Recovered/Not Resolved]
  - Poor quality sleep [Unknown]

NARRATIVE: CASE EVENT DATE: 201909
